FAERS Safety Report 19846634 (Version 1)
Quarter: 2021Q3

REPORT INFORMATION
  Report Type: Spontaneous
  Country: FR (occurrence: FR)
  Receive Date: 20210917
  Receipt Date: 20210917
  Transmission Date: 20211014
  Serious: Yes (Hospitalization)
  Sender: FDA-Public Use
  Company Number: FR-ACCORD-238849

PATIENT
  Age: 59 Year
  Sex: Male
  Weight: 63 kg

DRUGS (2)
  1. CARBOPLATIN ACCORD [Suspect]
     Active Substance: CARBOPLATIN
     Indication: NEUROENDOCRINE TUMOUR
     Dosage: 590 MG IV PER CYCLE
     Route: 041
     Dates: start: 20210626, end: 20210720
  2. ETOPOSIDE TEVA [Suspect]
     Active Substance: ETOPOSIDE
     Indication: NEUROENDOCRINE TUMOUR
     Dosage: 180 MG IV PER CYCLE
     Route: 041
     Dates: start: 20210629, end: 20210722

REACTIONS (2)
  - Ejection fraction decreased [Not Recovered/Not Resolved]
  - Off label use [Unknown]

NARRATIVE: CASE EVENT DATE: 20210809
